FAERS Safety Report 8845858 (Version 1)
Quarter: 2012Q4

REPORT INFORMATION
  Report Type: 
  Country: MK (occurrence: MK)
  Receive Date: 20121017
  Receipt Date: 20121017
  Transmission Date: 20130627
  Serious: Yes (Other)
  Sender: FDA-Public Use
  Company Number: MK-JNJFOC-20121009683

PATIENT
  Sex: Female

DRUGS (2)
  1. XARELTO [Suspect]
     Indication: FEMUR FRACTURE
     Route: 048
     Dates: start: 2009, end: 2009
  2. XARELTO [Suspect]
     Indication: THROMBOSIS PROPHYLAXIS
     Route: 048
     Dates: start: 2009, end: 2009

REACTIONS (1)
  - Venous thrombosis [Recovered/Resolved]
